FAERS Safety Report 16581645 (Version 2)
Quarter: 2020Q1

REPORT INFORMATION
  Report Type: Spontaneous
  Country: US (occurrence: US)
  Receive Date: 20190716
  Receipt Date: 20200117
  Transmission Date: 20200409
  Serious: No
  Sender: FDA-Public Use
  Company Number: US-US WORLDMEDS, LLC-USW201906-001094

PATIENT
  Age: 65 Year
  Sex: Female
  Weight: 53.5 kg

DRUGS (16)
  1. SINEMET [Suspect]
     Active Substance: CARBIDOPA\LEVODOPA
     Indication: PARKINSON^S DISEASE
     Dosage: 25/100 MG
     Dates: end: 20190328
  2. SINEMET [Suspect]
     Active Substance: CARBIDOPA\LEVODOPA
     Route: 048
     Dates: start: 1993
  3. APOKYN [Concomitant]
     Active Substance: APOMORPHINE HYDROCHLORIDE
  4. GOCOVRI [Suspect]
     Active Substance: AMANTADINE
     Route: 048
     Dates: start: 20190327
  5. SINEMET [Suspect]
     Active Substance: CARBIDOPA\LEVODOPA
     Route: 048
     Dates: start: 1993
  6. VITAMINS [Concomitant]
     Active Substance: VITAMINS
  7. SINEMET [Suspect]
     Active Substance: CARBIDOPA\LEVODOPA
     Dates: start: 20190320
  8. LISINOPRIL. [Concomitant]
     Active Substance: LISINOPRIL
  9. BUPROPION. [Concomitant]
     Active Substance: BUPROPION
  10. ENTACAPONE. [Concomitant]
     Active Substance: ENTACAPONE
  11. AMANTADINE. [Concomitant]
     Active Substance: AMANTADINE HYDROCHLORIDE
  12. COMTAN [Concomitant]
     Active Substance: ENTACAPONE
  13. XADAGO [Suspect]
     Active Substance: SAFINAMIDE MESYLATE
     Indication: PRODUCT USED FOR UNKNOWN INDICATION
     Route: 048
     Dates: start: 2017
  14. PRAMIPEXOLE. [Concomitant]
     Active Substance: PRAMIPEXOLE
  15. GOCOVRI [Suspect]
     Active Substance: AMANTADINE
     Indication: DYSKINESIA
     Route: 048
     Dates: start: 20190320, end: 20190326
  16. GOCOVRI [Suspect]
     Active Substance: AMANTADINE
     Route: 048
     Dates: start: 20190408

REACTIONS (6)
  - Bradyphrenia [Unknown]
  - Gait disturbance [Not Recovered/Not Resolved]
  - Drug interaction [Unknown]
  - Hypotension [Recovered/Resolved]
  - Dizziness [Recovered/Resolved]
  - Product dose omission [Unknown]

NARRATIVE: CASE EVENT DATE: 20190325
